FAERS Safety Report 9688260 (Version 1)
Quarter: 2013Q4

REPORT INFORMATION
  Report Type: Spontaneous
  Country: US (occurrence: None)
  Receive Date: 20131113
  Receipt Date: 20131113
  Transmission Date: 20140711
  Serious: No
  Sender: FDA-Public Use
  Company Number: None

PATIENT
  Age: 27 Year
  Sex: Male
  Weight: 86.18 kg

DRUGS (1)
  1. METHYLPHENIDATE ER [Suspect]
     Indication: ATTENTION DEFICIT/HYPERACTIVITY DISORDER
     Dosage: 1, ONCE DAILY, TAKEN BY MOUTH, 4 YEARS (ONE MONTH WITH NEW DRUG)

REACTIONS (10)
  - Heart rate increased [None]
  - Nervousness [None]
  - Bruxism [None]
  - Abnormal behaviour [None]
  - Headache [None]
  - Nausea [None]
  - Product formulation issue [None]
  - Drug effect decreased [None]
  - Product quality issue [None]
  - Product substitution issue [None]
